FAERS Safety Report 6794084-3 (Version None)
Quarter: 2010Q2

REPORT INFORMATION
  Report Type: 
  Country: None (occurrence: None)
  Receive Date: 20100624
  Receipt Date: 20091102
  Transmission Date: 20101027
  Serious: Yes (Other)
  Sender: FDA-Public Use
  Company Number: US-PFIZER INC-2009292583

PATIENT
  Age: 17 Year
  Sex: Female

DRUGS (3)
  1. RELPAX [Suspect]
     Dosage: 40 MG, UNK
  2. IMITREX [Suspect]
     Dosage: UNK
  3. CELEXA [Suspect]
     Dosage: UNK

REACTIONS (3)
  - BURNING SENSATION [None]
  - DRUG INEFFECTIVE [None]
  - SEROTONIN SYNDROME [None]
